FAERS Safety Report 5541571-1 (Version None)
Quarter: 2007Q4

REPORT INFORMATION
  Report Type: 
  Country: None (occurrence: None)
  Receive Date: 20071210
  Receipt Date: 20071202
  Transmission Date: 20080405
  Serious: Yes (Other)
  Sender: FDA-Public Use
  Company Number: PHBS2007JP19559

PATIENT
  Age: 73 Year
  Sex: Male

DRUGS (2)
  1. DIOVAN [Suspect]
     Indication: HYPERTENSION
     Dosage: 80 MG/DAY
     Route: 048
  2. AMLODIPINE [Concomitant]
     Dosage: 5 MG, UNK
     Route: 048

REACTIONS (2)
  - CONFUSIONAL STATE [None]
  - RESTLESSNESS [None]
